FAERS Safety Report 5788208-4 (Version None)
Quarter: 2008Q2

REPORT INFORMATION
  Report Type: 
  Country: None (occurrence: None)
  Receive Date: 20080625
  Receipt Date: 20071120
  Transmission Date: 20081010
  Serious: Yes (Other)
  Sender: FDA-Public Use
  Company Number: US-ELI_LILLY_AND_COMPANY-US200711005071

PATIENT
  Sex: Male
  Weight: 77.098 kg

DRUGS (4)
  1. HUMATROPE [Suspect]
     Indication: GROWTH HORMONE DEFICIENCY
     Dosage: 0.4 MG, DAILY (1/D)
     Route: 058
     Dates: start: 20041101
  2. TESTIM [Concomitant]
     Indication: HYPOGONADISM
     Dosage: 25 MG, DAILY (1/D)
     Dates: start: 20040616
  3. NIASPAN [Concomitant]
     Indication: HYPERLIPIDAEMIA
     Dosage: 1000 MG, DAILY (1/D)
     Route: 048
     Dates: start: 20050301
  4. METOPROLOL [Concomitant]
     Indication: HYPERTENSION
     Dates: start: 20050101

REACTIONS (1)
  - BASAL CELL CARCINOMA [None]
